FAERS Safety Report 7154782-9 (Version None)
Quarter: 2010Q4

REPORT INFORMATION
  Report Type: 
  Country: None (occurrence: None)
  Receive Date: 20101214
  Receipt Date: 20091109
  Transmission Date: 20110411
  Serious: No
  Sender: FDA-Public Use
  Company Number: US-AMGEN-KDL373644

PATIENT

DRUGS (2)
  1. ENBREL [Suspect]
     Indication: POLYCHONDRITIS
     Dosage: 50 MG, QWK
     Route: 058
     Dates: start: 20041001
  2. METHOTREXATE [Concomitant]
     Dosage: 20 MG, QWK
     Route: 048

REACTIONS (4)
  - ASTHENIA [None]
  - EAR PAIN [None]
  - FATIGUE [None]
  - INFECTION [None]
